FAERS Safety Report 4469719-0 (Version None)
Quarter: 2004Q3

REPORT INFORMATION
  Report Type: 
  Country: None (occurrence: None)
  Receive Date: 20040917
  Receipt Date: 20030812
  Transmission Date: 20050211
  Serious: Yes (Other)
  Sender: FDA-Public Use
  Company Number: PHEH2003US07222

PATIENT
  Age: 82 Year
  Sex: Female

DRUGS (1)
  1. FEMARA [Suspect]
     Indication: BREAST CANCER
     Dosage: 2.5 MG, QD
     Dates: start: 20030501

REACTIONS (3)
  - BLOOD PRESSURE INCREASED [None]
  - HOT FLUSH [None]
  - HYPERHIDROSIS [None]
